FAERS Safety Report 10761284 (Version 3)
Quarter: 2015Q1

REPORT INFORMATION
  Report Type: Spontaneous
  Country: US (occurrence: US)
  Receive Date: 20150204
  Receipt Date: 20150311
  Transmission Date: 20150721
  Serious: No
  Sender: FDA-Public Use
  Company Number: US-PFIZER INC-2015045669

PATIENT
  Age: 36 Year
  Sex: Female
  Weight: 60 kg

DRUGS (3)
  1. CHANTIX [Suspect]
     Active Substance: VARENICLINE TARTRATE
     Dosage: DAYS 4-7 TAKE ONE PILL IN AM AND ONE IN PM
     Route: 048
     Dates: start: 20150109, end: 20150130
  2. CHANTIX [Suspect]
     Active Substance: VARENICLINE TARTRATE
     Indication: SMOKING CESSATION THERAPY
     Dosage: DAYS 1-3 ONE WHITE PILL IN AM DAY
     Route: 048
     Dates: start: 20150108, end: 20150131
  3. CHANTIX [Suspect]
     Active Substance: VARENICLINE TARTRATE
     Dosage: DAYS 8 TO END OF TREATMENT TAKE ON BLUE PILL IN THE AM AND ONE BLUE PILL IN PM
     Dates: start: 20150108, end: 20150131

REACTIONS (3)
  - Hypoaesthesia [Recovering/Resolving]
  - Nausea [Recovering/Resolving]
  - Abnormal dreams [Recovering/Resolving]

NARRATIVE: CASE EVENT DATE: 20150109
